FAERS Safety Report 5235293-4 (Version None)
Quarter: 2007Q1

REPORT INFORMATION
  Report Type: 
  Country: None (occurrence: None)
  Receive Date: 20070207
  Receipt Date: 20070207
  Transmission Date: 20070707
  Serious: Yes (Death)
  Sender: FDA-Public Use
  Company Number: None

PATIENT
  Sex: Female
  Weight: 92.5338 kg

DRUGS (1)
  1. REMICADE [Suspect]
     Indication: RHEUMATOID ARTHRITIS
     Dosage: 300MG  Q MONTH  IV
     Route: 042
     Dates: start: 20060201, end: 20060501

REACTIONS (3)
  - PNEUMONIA [None]
  - SEPTIC SHOCK [None]
  - TUBERCULOSIS [None]
